FAERS Safety Report 18737403 (Version 4)
Quarter: 2021Q2

REPORT INFORMATION
  Report Type: Spontaneous
  Country: US (occurrence: US)
  Receive Date: 20210113
  Receipt Date: 20210413
  Transmission Date: 20210717
  Serious: Yes (Hospitalization, Other)
  Sender: FDA-Public Use
  Company Number: US-MALLINCKRODT-T202100041

PATIENT
  Sex: Male
  Weight: 71 kg

DRUGS (2)
  1. H.P. ACTHAR [Suspect]
     Active Substance: CORTICOTROPIN
     Indication: POLYMYOSITIS
     Dosage: 80 UNITS (1 MILLILITER), TWO TIMES A WEEK
     Route: 058
     Dates: start: 202011
  2. H.P. ACTHAR [Suspect]
     Active Substance: CORTICOTROPIN
     Indication: DERMATOMYOSITIS
     Dosage: 80 UNITS (1 MILLILITER), TWO TIMES A WEEK
     Route: 058
     Dates: start: 20201029, end: 2020

REACTIONS (6)
  - Sjogren^s syndrome [Unknown]
  - Night sweats [Recovered/Resolved]
  - Dysstasia [Unknown]
  - Tracheostomy [Unknown]
  - Asthenia [Not Recovered/Not Resolved]
  - Weight decreased [Not Recovered/Not Resolved]

NARRATIVE: CASE EVENT DATE: 2020
